FAERS Safety Report 25435060 (Version 1)
Quarter: 2025Q2

REPORT INFORMATION
  Report Type: Spontaneous
  Country: US (occurrence: US)
  Receive Date: 20250613
  Receipt Date: 20250613
  Transmission Date: 20250716
  Serious: No
  Sender: NANJING KING-FRIEND BIOCHEMICAL PHARMACEUTICAL
  Company Number: US-NKFPHARMA-2025MPSPO00187

PATIENT
  Age: 63 Year
  Sex: Female

DRUGS (2)
  1. ENOXAPARIN SODIUM [Suspect]
     Active Substance: ENOXAPARIN SODIUM
     Indication: Anticoagulant therapy
     Dosage: TWICE DAILY
     Route: 065
     Dates: start: 202502
  2. ENOXAPARIN SODIUM [Suspect]
     Active Substance: ENOXAPARIN SODIUM

REACTIONS (3)
  - Injection site bruising [Not Recovered/Not Resolved]
  - Injection site haemorrhage [Unknown]
  - Device issue [Unknown]
